FAERS Safety Report 4847253-3 (Version None)
Quarter: 2005Q4

REPORT INFORMATION
  Report Type: 
  Country: None (occurrence: None)
  Receive Date: 20051207
  Receipt Date: 20051124
  Transmission Date: 20060501
  Serious: Yes (Hospitalization)
  Sender: FDA-Public Use
  Company Number: SE-GLAXOSMITHKLINE-B0402101A

PATIENT
  Age: 50 Year
  Sex: Female

DRUGS (3)
  1. LAMICTAL [Suspect]
     Dosage: 25MG TWICE PER DAY
     Route: 048
     Dates: start: 20050421, end: 20050430
  2. CISORDINOL [Concomitant]
  3. ERGENYL [Concomitant]

REACTIONS (3)
  - EYE PRURITUS [None]
  - PYREXIA [None]
  - RASH MACULO-PAPULAR [None]
